FAERS Safety Report 7113037-9 (Version None)
Quarter: 2010Q4

REPORT INFORMATION
  Report Type: 
  Country: None (occurrence: None)
  Receive Date: 20101119
  Receipt Date: 20101109
  Transmission Date: 20110411
  Serious: Yes (Other)
  Sender: FDA-Public Use
  Company Number: US-JNJFOC-20101104921

PATIENT
  Sex: Female
  Weight: 49.9 kg

DRUGS (7)
  1. SANDOZ FENTANYL TRANSDERMAL SYSTEM [Suspect]
     Indication: SJOGREN'S SYNDROME
     Route: 062
  2. SANDOZ FENTANYL TRANSDERMAL SYSTEM [Suspect]
     Indication: FIBROMYALGIA
     Route: 062
  3. FENTANYL [Suspect]
     Indication: SJOGREN'S SYNDROME
     Route: 062
  4. FENTANYL [Suspect]
     Indication: FIBROMYALGIA
     Route: 062
  5. HYDROMORPHONE HCL [Suspect]
     Indication: SJOGREN'S SYNDROME
     Dosage: HALF TABLET EVERY 6-8 HOURS
     Route: 048
  6. HYDROMORPHONE HCL [Suspect]
     Indication: FIBROMYALGIA
     Dosage: HALF TABLET EVERY 6-8 HOURS
     Route: 048
  7. ACYCLOVIR [Suspect]
     Indication: ORAL HERPES
     Route: 048

REACTIONS (8)
  - DRUG DOSE OMISSION [None]
  - DRUG INEFFECTIVE [None]
  - DYSKINESIA [None]
  - HEADACHE [None]
  - INAPPROPRIATE SCHEDULE OF DRUG ADMINISTRATION [None]
  - ORAL DISCOMFORT [None]
  - ORAL HERPES [None]
  - PAIN [None]
